FAERS Safety Report 8236855-2 (Version None)
Quarter: 2012Q1

REPORT INFORMATION
  Report Type: 
  Country: None (occurrence: None)
  Receive Date: 20120327
  Receipt Date: 20111222
  Transmission Date: 20120608
  Serious: No
  Sender: FDA-Public Use
  Company Number: US-GLAXOSMITHKLINE-A0954332A

PATIENT
  Age: 47 Year
  Sex: Female

DRUGS (2)
  1. LAMICTAL [Suspect]
     Indication: CONVULSION
     Dosage: 100MG PER DAY
     Route: 048
     Dates: start: 20110720, end: 20111121
  2. AMERGE [Concomitant]

REACTIONS (4)
  - HEADACHE [None]
  - MENORRHAGIA [None]
  - WEIGHT INCREASED [None]
  - FATIGUE [None]
